FAERS Safety Report 7834260-1 (Version None)
Quarter: 2011Q4

REPORT INFORMATION
  Report Type: 
  Country: None (occurrence: None)
  Receive Date: 20111024
  Receipt Date: 20111018
  Transmission Date: 20120403
  Serious: Yes (Other)
  Sender: FDA-Public Use
  Company Number: PHHY2011CL91660

PATIENT
  Age: 69 Year
  Sex: Female

DRUGS (1)
  1. EXELON [Suspect]
     Indication: DEMENTIA ALZHEIMER'S TYPE
     Dosage: 9.5 MG, (PACTH 10, 1 PATCH DAILY)
     Route: 062
     Dates: start: 20110715, end: 20110812

REACTIONS (5)
  - LOSS OF CONSCIOUSNESS [None]
  - MOOD ALTERED [None]
  - DYSPHEMIA [None]
  - EAR PAIN [None]
  - DECREASED APPETITE [None]
